FAERS Safety Report 10471074 (Version 1)
Quarter: 2014Q3

REPORT INFORMATION
  Report Type: Spontaneous
  Country: JP (occurrence: JP)
  Receive Date: 20140923
  Receipt Date: 20140923
  Transmission Date: 20150326
  Serious: Yes (Other)
  Sender: FDA-Public Use
  Company Number: PHHY2014JP116848

PATIENT
  Sex: Male
  Weight: 67 kg

DRUGS (3)
  1. CELLCEPT [Concomitant]
     Active Substance: MYCOPHENOLATE MOFETIL\MYCOPHENOLATE MOFETIL HYDROCHLORIDE
     Dosage: UNK
  2. NEORAL [Suspect]
     Active Substance: CYCLOSPORINE
     Indication: RENAL TRANSPLANT
     Dosage: 90 MG (45 MG X 2), UNK
     Route: 048
  3. CERTICAN [Suspect]
     Active Substance: EVEROLIMUS
     Indication: RENAL TRANSPLANT
     Dosage: 1 MG (0.5 MG X 2), UNK
     Route: 048

REACTIONS (7)
  - Diabetic nephropathy [Unknown]
  - Blood pressure increased [Unknown]
  - Kidney transplant rejection [Unknown]
  - Stomatitis [Unknown]
  - Renal disorder [Unknown]
  - Immunosuppressant drug level decreased [Unknown]
  - Constipation [Unknown]
